FAERS Safety Report 13439525 (Version 2)
Quarter: 2018Q2

REPORT INFORMATION
  Report Type: Spontaneous
  Country: DE (occurrence: DE)
  Receive Date: 20170412
  Receipt Date: 20180403
  Transmission Date: 20180711
  Serious: Yes (Hospitalization, Other)
  Sender: FDA-Public Use
  Company Number: DE-MYLANLABS-2017M1022803

PATIENT
  Age: 36 Year
  Sex: Male

DRUGS (3)
  1. ETOPOSIDE. [Suspect]
     Active Substance: ETOPOSIDE
     Indication: SEMINOMA
     Dosage: 100 MG/M2, UNK
     Route: 042
     Dates: start: 20090121, end: 20090514
  2. CISPLATIN. [Suspect]
     Active Substance: CISPLATIN
     Indication: TESTICULAR GERM CELL CANCER METASTATIC
     Dosage: 20 MG/M2, CYCLE
     Route: 042
     Dates: start: 20090121, end: 20090514
  3. CISPLATIN. [Suspect]
     Active Substance: CISPLATIN
     Indication: SEMINOMA

REACTIONS (7)
  - Facial paralysis [Recovered/Resolved]
  - Arterial occlusive disease [Recovered/Resolved]
  - Cerebral infarction [Recovered/Resolved]
  - Hemianopia [Recovered/Resolved]
  - Ischaemic cerebral infarction [Recovered/Resolved]
  - Cerebral artery occlusion [Recovered/Resolved]
  - Hemiplegia [Recovered/Resolved]

NARRATIVE: CASE EVENT DATE: 20090521
